FAERS Safety Report 4730755-8 (Version None)
Quarter: 2005Q3

REPORT INFORMATION
  Report Type: 
  Country: None (occurrence: None)
  Receive Date: 20050725
  Receipt Date: 20050517
  Transmission Date: 20060218
  Serious: No
  Sender: FDA-Public Use
  Company Number: USA050598319

PATIENT
  Age: 46 Year
  Sex: Male

DRUGS (1)
  1. STRATTERA [Suspect]
     Dosage: 20 MG IN THE MORNING
     Dates: start: 20050401

REACTIONS (10)
  - ANXIETY [None]
  - CONFUSIONAL STATE [None]
  - FATIGUE [None]
  - FEAR [None]
  - FEELING ABNORMAL [None]
  - FEELING GUILTY [None]
  - IMMOBILE [None]
  - INSOMNIA [None]
  - NERVOUSNESS [None]
  - OBSESSIVE-COMPULSIVE DISORDER [None]
